FAERS Safety Report 8758521 (Version 1)
Quarter: 2012Q4

REPORT INFORMATION
  Report Type: 
  Country: US (occurrence: US)
  Receive Date: 20120829
  Receipt Date: 20120829
  Transmission Date: 20130627
  Serious: No
  Sender: FDA-Public Use
  Company Number: US-GLAXOSMITHKLINE-A0949896A

PATIENT
  Age: 26 Year
  Sex: Male

DRUGS (2)
  1. ACYCLOVIR [Suspect]
     Indication: HERPES ZOSTER
     Dosage: 800MG Four times per day
     Route: 048
     Dates: start: 20111019
  2. KEFLEX [Concomitant]
     Dates: end: 20111019

REACTIONS (1)
  - Vomiting [Unknown]
